FAERS Safety Report 17259004 (Version 2)
Quarter: 2020Q1

REPORT INFORMATION
  Report Type: Spontaneous
  Country: US (occurrence: US)
  Receive Date: 20200110
  Receipt Date: 20200115
  Transmission Date: 20200409
  Serious: Yes (Other)
  Sender: FDA-Public Use
  Company Number: US-PFIZER INC-2020011206

PATIENT

DRUGS (12)
  1. NEXIUM [Suspect]
     Active Substance: ESOMEPRAZOLE MAGNESIUM
     Dosage: UNK
     Dates: start: 2011
  2. PREVACID [Suspect]
     Active Substance: LANSOPRAZOLE
     Dosage: UNK
     Dates: start: 1995
  3. PROTONIX [Suspect]
     Active Substance: PANTOPRAZOLE SODIUM
     Dosage: UNK
     Dates: start: 2011
  4. PROTONIX [Suspect]
     Active Substance: PANTOPRAZOLE SODIUM
     Dosage: UNK
     Dates: start: 1995
  5. PRILOSEC [Suspect]
     Active Substance: OMEPRAZOLE MAGNESIUM
     Dosage: UNK
     Dates: start: 1995
  6. PREVACID [Suspect]
     Active Substance: LANSOPRAZOLE
     Dosage: UNK
     Dates: start: 2003
  7. PREVACID [Suspect]
     Active Substance: LANSOPRAZOLE
     Dosage: UNK
     Dates: start: 2011
  8. PRILOSEC [Suspect]
     Active Substance: OMEPRAZOLE MAGNESIUM
     Dosage: UNK
     Dates: start: 2003
  9. NEXIUM [Suspect]
     Active Substance: ESOMEPRAZOLE MAGNESIUM
     Dosage: UNK
     Dates: start: 1995
  10. PROTONIX [Suspect]
     Active Substance: PANTOPRAZOLE SODIUM
     Dosage: UNK
     Dates: start: 2003
  11. PRILOSEC [Suspect]
     Active Substance: OMEPRAZOLE MAGNESIUM
     Dosage: UNK
     Dates: start: 2011
  12. NEXIUM [Suspect]
     Active Substance: ESOMEPRAZOLE MAGNESIUM
     Dosage: UNK
     Dates: start: 2003

REACTIONS (1)
  - End stage renal disease [Unknown]
